FAERS Safety Report 5477105-X (Version None)
Quarter: 2007Q4

REPORT INFORMATION
  Report Type: 
  Country: None (occurrence: None)
  Receive Date: 20071003
  Receipt Date: 20071003
  Transmission Date: 20080405
  Serious: Yes (Hospitalization)
  Sender: FDA-Public Use
  Company Number: None

PATIENT
  Age: 82 Year
  Sex: Male

DRUGS (1)
  1. LUCENTIS [Suspect]
     Indication: CHOROIDAL NEOVASCULARISATION
     Dosage: 0.05ML   INTRAOCULAR
     Route: 031
     Dates: start: 20070906, end: 20070906

REACTIONS (2)
  - DYSARTHRIA [None]
  - SPEECH DISORDER [None]
